FAERS Safety Report 6669371-X (Version None)
Quarter: 2010Q2

REPORT INFORMATION
  Report Type: 
  Country: None (occurrence: None)
  Receive Date: 20100406
  Receipt Date: 20100330
  Transmission Date: 20101027
  Serious: Yes (Other)
  Sender: FDA-Public Use
  Company Number: A0853513A

PATIENT
  Sex: Female

DRUGS (2)
  1. LAMICTAL CD [Suspect]
     Route: 048
  2. LAMOTRIGINE [Suspect]
     Route: 048

REACTIONS (3)
  - CONVULSION [None]
  - GRAND MAL CONVULSION [None]
  - HEAD INJURY [None]
